FAERS Safety Report 13834920 (Version 5)
Quarter: 2017Q3

REPORT INFORMATION
  Report Type: Spontaneous
  Country: US (occurrence: US)
  Receive Date: 20170804
  Receipt Date: 20170919
  Transmission Date: 20171127
  Serious: No
  Sender: FDA-Public Use
  Company Number: US-ALEXION PHARMACEUTICALS INC.-A201708685

PATIENT
  Sex: Female

DRUGS (3)
  1. STRENSIQ [Suspect]
     Active Substance: ASFOTASE ALFA
     Indication: PRODUCT USED FOR UNKNOWN INDICATION
     Dosage: 1 MG, SIX TIMES/WEEK
     Route: 058
  2. STRENSIQ [Suspect]
     Active Substance: ASFOTASE ALFA
     Dosage: UNK, 3 TIMES A WEEK
     Route: 058
  3. STRENSIQ [Suspect]
     Active Substance: ASFOTASE ALFA
     Dosage: UNK, 3 TIMES A WEEK
     Route: 058

REACTIONS (10)
  - Inflammation [Unknown]
  - Bone lesion [Unknown]
  - Injection site haemorrhage [Unknown]
  - Arthropathy [Unknown]
  - Chest pain [Unknown]
  - Ehlers-Danlos syndrome [Unknown]
  - Alopecia [Unknown]
  - Osteoarthritis [Unknown]
  - Vision blurred [Unknown]
  - Dyspnoea [Unknown]

NARRATIVE: CASE EVENT DATE: 20170911
